FAERS Safety Report 5063658-2 (Version None)
Quarter: 2006Q3

REPORT INFORMATION
  Report Type: 
  Country: None (occurrence: None)
  Receive Date: 20060727
  Receipt Date: 20060717
  Transmission Date: 20061208
  Serious: Yes (Hospitalization)
  Sender: FDA-Public Use
  Company Number: FR-BRISTOL-MYERS SQUIBB COMPANY-13447172

PATIENT
  Age: 25 Year
  Sex: Female

DRUGS (5)
  1. VASTEN TABS 20 MG [Suspect]
     Route: 048
  2. OMEPRAZOLE [Suspect]
     Route: 048
  3. PROGRAF [Suspect]
     Indication: PROPHYLAXIS
     Route: 048
  4. ASPIRIN [Suspect]
     Route: 048
  5. CELLCEPT [Suspect]
     Indication: PROPHYLAXIS
     Route: 048

REACTIONS (1)
  - DIABETES MELLITUS [None]
